FAERS Safety Report 8841190 (Version 1)
Quarter: 2012Q4

REPORT INFORMATION
  Report Type: 
  Country: US (occurrence: US)
  Receive Date: 20121015
  Receipt Date: 20121015
  Transmission Date: 20130627
  Serious: Yes (Other)
  Sender: FDA-Public Use
  Company Number: US-ROCHE-1027716

PATIENT
  Sex: Female
  Weight: 54.48 kg

DRUGS (3)
  1. ACCUTANE [Suspect]
     Indication: ACNE
     Route: 048
     Dates: start: 1991, end: 1992
  2. ACCUTANE [Suspect]
     Dosage: For three months
     Route: 048
     Dates: start: 1982
  3. ACCUTANE [Suspect]
     Dosage: for 4 months
     Route: 048
     Dates: start: 1992

REACTIONS (3)
  - Colitis ulcerative [Unknown]
  - Depression [Unknown]
  - Bipolar disorder [Unknown]
